FAERS Safety Report 9471020 (Version 1)
Quarter: 2013Q3

REPORT INFORMATION
  Report Type: Spontaneous
  Country: DE (occurrence: None)
  Receive Date: 20130815
  Receipt Date: 20130815
  Transmission Date: 20140515
  Serious: Yes (Hospitalization)
  Sender: FDA-Public Use
  Company Number: USA/GER/13/0034023

PATIENT
  Age: 22 Year
  Sex: Male
  Weight: 106 kg

DRUGS (3)
  1. CITALOPRAM [Suspect]
  2. SERTRALINE (SERTRALINE HYDROCHLORIDE) [Suspect]
  3. MIRTAZAPINE (MIRTAZAPINE) [Suspect]
     Dates: start: 201201

REACTIONS (1)
  - Psychotic disorder [None]
